FAERS Safety Report 12803587 (Version 1)
Quarter: 2016Q4

REPORT INFORMATION
  Report Type: Spontaneous
  Country: US (occurrence: US)
  Receive Date: 20161003
  Receipt Date: 20161003
  Transmission Date: 20170207
  Serious: Yes (Hospitalization)
  Sender: FDA-Public Use
  Company Number: US-BAXTER-2016BAX049316

PATIENT
  Age: 32 Year
  Sex: Female

DRUGS (1)
  1. TISSEEL [Suspect]
     Active Substance: FIBRINOGEN HUMAN\THROMBIN HUMAN
     Indication: SPINAL OPERATION
     Route: 065
     Dates: start: 20160815

REACTIONS (1)
  - Spinal epidural haematoma [Unknown]

NARRATIVE: CASE EVENT DATE: 20160909
